FAERS Safety Report 16436200 (Version 2)
Quarter: 2019Q3

REPORT INFORMATION
  Report Type: Spontaneous
  Country: US (occurrence: US)
  Receive Date: 20190614
  Receipt Date: 20190702
  Transmission Date: 20191004
  Serious: No
  Sender: FDA-Public Use
  Company Number: US-JNJFOC-20190601146

PATIENT
  Sex: Male
  Weight: 77.18 kg

DRUGS (1)
  1. MINOXIDIL. [Suspect]
     Active Substance: MINOXIDIL
     Indication: ALOPECIA
     Route: 061
     Dates: start: 201901, end: 20190528

REACTIONS (6)
  - Pruritus [Recovering/Resolving]
  - Blister [Recovering/Resolving]
  - Skin disorder [Recovering/Resolving]
  - Erythema [Recovering/Resolving]
  - Pain [Recovering/Resolving]
  - Skin exfoliation [Recovering/Resolving]

NARRATIVE: CASE EVENT DATE: 2019
